FAERS Safety Report 16436267 (Version 1)
Quarter: 2019Q2

REPORT INFORMATION
  Report Type: Spontaneous
  Country: US (occurrence: US)
  Receive Date: 20190614
  Receipt Date: 20190614
  Transmission Date: 20190711
  Serious: No
  Sender: FDA-Public Use
  Company Number: US-JNJFOC-20190614805

PATIENT
  Sex: Female

DRUGS (3)
  1. MENS ROGAINE EXTRA STRENGTH [Suspect]
     Active Substance: MINOXIDIL
     Indication: ALOPECIA
     Route: 061
  2. MENS ROGAINE EXTRA STRENGTH [Suspect]
     Active Substance: MINOXIDIL
     Route: 061
  3. TAR [Concomitant]
     Active Substance: TAR
     Indication: SEBORRHOEIC DERMATITIS
     Route: 061

REACTIONS (3)
  - Contraindicated product administered [Unknown]
  - Intentional product misuse [Unknown]
  - Product use issue [Unknown]
